FAERS Safety Report 21007688 (Version 4)
Quarter: 2024Q1

REPORT INFORMATION
  Report Type: Spontaneous
  Country: PK (occurrence: PK)
  Receive Date: 20220627
  Receipt Date: 20240328
  Transmission Date: 20240410
  Serious: Yes (Hospitalization, Other)
  Sender: FDA-Public Use
  Company Number: PK-PFIZER INC-2021306242

PATIENT
  Age: 22 Year
  Sex: Male
  Weight: 75 kg

DRUGS (14)
  1. ENBREL [Suspect]
     Active Substance: ETANERCEPT
     Indication: Axial spondyloarthritis
     Dosage: 50 MG, WEEKLY
     Route: 058
     Dates: start: 202103
  2. ENBREL [Suspect]
     Active Substance: ETANERCEPT
     Dosage: 50 MG, EVERY 2 WEEKS
     Route: 058
     Dates: start: 20220314
  3. ENBREL [Suspect]
     Active Substance: ETANERCEPT
     Dosage: 50 MG, WEEKLY
     Route: 058
  4. Phlogin [Concomitant]
     Dosage: 50 MG, WEEKLY
  5. Phlogin [Concomitant]
     Dosage: 50 MG (1+0+1+0, AFTER MEAL, 1+1 IN MORNING AND EVENING AFTER MEAL FOR 2 WEEKS)
  6. ETORICOXIB [Concomitant]
     Active Substance: ETORICOXIB
     Dosage: 60 MG, DAILY
  7. EVION [Concomitant]
     Active Substance: .ALPHA.-TOCOPHEROL ACETATE
     Dosage: 1 DF, 1X/DAY
  8. LEVOFLOXACIN [Concomitant]
     Active Substance: LEVOFLOXACIN
     Dosage: 750 MG (0+0+0, 4 DAILY AFTER MEAL FOR 7 DAYS)
  9. LEVOFLOXACIN [Concomitant]
     Active Substance: LEVOFLOXACIN
     Dosage: 750 MG, 1X/DAY(1 X TABLETS, ONCE A DAY FOR 10 DAYS)
  10. DELTACORTRIL [Concomitant]
     Active Substance: PREDNISOLONE
     Dosage: 2+2 IN MORNING AND AFTERNOON AFTER MEAL FOR 1 WEEK
  11. DELTACORTRIL [Concomitant]
     Active Substance: PREDNISOLONE
     Dosage: 2+1 IN MORNING AND AFTERNOON AFTER MEAL FOR 1 WEEK
  12. DELTACORTRIL [Concomitant]
     Active Substance: PREDNISOLONE
     Dosage: 2TAB IN MORNING AFTER MEAL FOR 1 WEEK
  13. DELTACORTRIL [Concomitant]
     Active Substance: PREDNISOLONE
     Dosage: 1TAB IN MORNING AFTER MEAL FOR 1 WEEK
  14. Risek [Concomitant]
     Dosage: 40 MG, 1X/DAY(1+0+0+0, BEFORE MEAL, 1 CAP IN MORNING BEFORE MEAL FOR 4 WEEKS)

REACTIONS (28)
  - Aspiration joint [Unknown]
  - Pyrexia [Recovering/Resolving]
  - Dysuria [Recovering/Resolving]
  - Hepatic steatosis [Recovering/Resolving]
  - Splenomegaly [Recovering/Resolving]
  - Intentional product use issue [Unknown]
  - Condition aggravated [Unknown]
  - Conjunctivitis [Unknown]
  - Urinary tract infection [Unknown]
  - C-reactive protein increased [Unknown]
  - Diarrhoea [Unknown]
  - Uveitis [Unknown]
  - Dactylitis [Unknown]
  - Abdominal hernia repair [Unknown]
  - Systemic infection [Unknown]
  - Arthralgia [Unknown]
  - Alanine aminotransferase increased [Unknown]
  - Back pain [Unknown]
  - Musculoskeletal stiffness [Unknown]
  - Fatigue [Unknown]
  - Tendon pain [Unknown]
  - Hypertension [Unknown]
  - Chills [Unknown]
  - Burning sensation [Unknown]
  - Pain [Unknown]
  - Drug ineffective [Unknown]
  - Off label use [Unknown]
  - Intentional product misuse [Unknown]

NARRATIVE: CASE EVENT DATE: 20211101
